FAERS Safety Report 9251651 (Version 2)
Quarter: 2013Q2

REPORT INFORMATION
  Report Type: Spontaneous
  Country: US (occurrence: US)
  Receive Date: 20130424
  Receipt Date: 20130515
  Transmission Date: 20140414
  Serious: No
  Sender: FDA-Public Use
  Company Number: US-PFIZER INC-2013123770

PATIENT
  Age: 82 Year
  Sex: Male
  Weight: 92.97 kg

DRUGS (4)
  1. XANAX [Suspect]
     Indication: DEPRESSION
     Dosage: 0.25 MG, AS NEEDED
  2. CELEBREX [Interacting]
     Indication: ARTHRITIS
     Dosage: 200 MG, 1X/DAY
     Dates: start: 201304, end: 20130417
  3. CYMBALTA [Interacting]
     Indication: DEPRESSION
     Dosage: 60 MG, 1X/DAY
     Dates: start: 2012
  4. COLACE [Concomitant]
     Dosage: 100 MG, 1X/DAY

REACTIONS (2)
  - Drug interaction [Unknown]
  - Feeling hot [Recovered/Resolved]
